FAERS Safety Report 7600570-6 (Version None)
Quarter: 2011Q2

REPORT INFORMATION
  Report Type: 
  Country: None (occurrence: None)
  Receive Date: 20110627
  Receipt Date: 20110323
  Transmission Date: 20111010
  Serious: Yes (Life-Threatening)
  Sender: FDA-Public Use
  Company Number: VISP-PR-1103S-0091

PATIENT
  Age: 32 Year
  Sex: Male

DRUGS (1)
  1. VISIPAQUE [Suspect]
     Indication: NEPHROLITHIASIS
     Dosage: 60 ML, SINGLE DOSE, INTRAVENOUS
     Route: 042
     Dates: start: 20110321, end: 20110321

REACTIONS (4)
  - ANAPHYLACTOID REACTION [None]
  - CHEST DISCOMFORT [None]
  - DYSPNOEA [None]
  - LARYNGEAL OEDEMA [None]
